FAERS Safety Report 20208192 (Version 2)
Quarter: 2022Q1

REPORT INFORMATION
  Report Type: Spontaneous
  Country: US (occurrence: US)
  Receive Date: 20211220
  Receipt Date: 20220124
  Transmission Date: 20220423
  Serious: No
  Sender: FDA-Public Use
  Company Number: US-ORGANON-O2112USA001312

PATIENT
  Sex: Female
  Weight: 163.08 kg

DRUGS (1)
  1. NEXPLANON [Suspect]
     Active Substance: ETONOGESTREL
     Indication: Contraception
     Dosage: 1 ROD IN LEFT UPPER ARM
     Route: 059
     Dates: start: 20211115

REACTIONS (4)
  - Implant site pain [Recovered/Resolved]
  - Device placement issue [Not Recovered/Not Resolved]
  - Device issue [Not Recovered/Not Resolved]
  - Device deployment issue [Not Recovered/Not Resolved]

NARRATIVE: CASE EVENT DATE: 20210101
